FAERS Safety Report 12687534 (Version 6)
Quarter: 2017Q2

REPORT INFORMATION
  Report Type: Report from Study
  Country: US (occurrence: US)
  Receive Date: 20160826
  Receipt Date: 20170608
  Transmission Date: 20170830
  Serious: No
  Sender: FDA-Public Use
  Company Number: PHEH2016US021513

PATIENT
  Age: 71 Year
  Sex: Female
  Weight: 118.8 kg

DRUGS (1)
  1. EXTAVIA [Suspect]
     Active Substance: INTERFERON BETA-1B
     Indication: MULTIPLE SCLEROSIS
     Dosage: 0.25 MG (1 ML), QOD
     Route: 058
     Dates: start: 201201

REACTIONS (6)
  - Hepatic enzyme increased [Unknown]
  - Injection site mass [Unknown]
  - Injection site macule [Not Recovered/Not Resolved]
  - Laryngitis [Unknown]
  - Injection site erythema [Unknown]
  - Injection site pain [Unknown]

NARRATIVE: CASE EVENT DATE: 201603
